FAERS Safety Report 11798101 (Version 5)
Quarter: 2020Q3

REPORT INFORMATION
  Report Type: Report from Study
  Country: NZ (occurrence: NZ)
  Receive Date: 20151203
  Receipt Date: 20160712
  Transmission Date: 20201104
  Serious: Yes (Other)
  Sender: FDA-Public Use
  Company Number: NZ-JNJFOC-20151123824

PATIENT
  Age: 60 Year
  Sex: Female
  Weight: 55.2 kg

DRUGS (5)
  1. SIMEPREVIR [Suspect]
     Active Substance: SIMEPREVIR
     Indication: HEPATITIS C
     Route: 048
     Dates: start: 20151015, end: 20151119
  2. AL?335 [Suspect]
     Active Substance: ADAFOSBUVIR
     Indication: HEPATITIS C
     Route: 048
     Dates: start: 20151015, end: 20151119
  3. ACH?3102 [Suspect]
     Active Substance: ODALASVIR
     Indication: HEPATITIS C
     Route: 048
     Dates: start: 20151015, end: 20151119
  4. SIMEPREVIR [Suspect]
     Active Substance: SIMEPREVIR
     Route: 048
  5. HYLO [Concomitant]
     Indication: DRY EYE
     Route: 047
     Dates: start: 2013

REACTIONS (1)
  - Atrioventricular block [Recovered/Resolved]

NARRATIVE: CASE EVENT DATE: 20151022
